FAERS Safety Report 18342910 (Version 3)
Quarter: 2020Q4

REPORT INFORMATION
  Report Type: Spontaneous
  Country: NL (occurrence: NL)
  Receive Date: 20201005
  Receipt Date: 20201104
  Transmission Date: 20210113
  Serious: Yes (Hospitalization)
  Sender: FDA-Public Use
  Company Number: NL-SA-2020SA271884

PATIENT

DRUGS (17)
  1. CALCIUMCARBIMIDUM [Concomitant]
     Dosage: UNK UNK, QD; 1.2SG/8801E 1D1
  2. HYDROXYCHLOROQUINE [Concomitant]
     Active Substance: HYDROXYCHLOROQUINE
     Dosage: 200 MG, QD
     Route: 058
  3. LACTULOSE. [Concomitant]
     Active Substance: LACTULOSE
     Dosage: UNK; 2 D
  4. COLECALCIFEROL [Concomitant]
     Active Substance: CHOLECALCIFEROL
     Dosage: UNK; 25,000IE AIONE ON SUNDAY 2 PIECE
  5. AZELASTINE;FLUTICASONE [Concomitant]
     Dosage: UNK UNK, BID; (137/S0UG 2D1)
  6. IPRATROPIUM BROMIDE;SALBUTAMOL [Concomitant]
     Active Substance: ALBUTEROL SULFATE\IPRATROPIUM BROMIDE
     Dosage: UNK; 1/0.2MG ZN 6X PER 1 DOSE
  7. DEXTRAN [Concomitant]
     Active Substance: DEXTRAN
     Dosage: UNK UNK, TID; 3D1 DRIP BOTH EYES
  8. HYDRALAZINE [Concomitant]
     Active Substance: HYDRALAZINE HYDROCHLORIDE
     Dosage: 10 MG; 2D2
  9. FORMOTEROL [Concomitant]
     Active Substance: FORMOTEROL
     Dosage: 2 DF, QD; 200/6UG 2-4X DAILY 2 DOSES
  10. BUDESONIDE. [Concomitant]
     Active Substance: BUDESONIDE
     Dosage: UNK UNK, BID; 0.5MG/ML ZN 2D1
  11. CETIRIZINE [Concomitant]
     Active Substance: CETIRIZINE HYDROCHLORIDE
     Dosage: 10 MG, QD
  12. OMEPRAZOLE. [Concomitant]
     Active Substance: OMEPRAZOLE
     Dosage: 20 MG, QD
  13. ALENDRONIC ACID [Concomitant]
     Active Substance: ALENDRONIC ACID
     Dosage: 70 MG, QW; (70MG ON MONDAYS ONLY 1)
  14. AMITRIPTYLINE [Concomitant]
     Active Substance: AMITRIPTYLINE
     Dosage: 10 MG, BID (2D1)
  15. SALBUTAMOL [Concomitant]
     Active Substance: ALBUTEROL
     Dosage: UNK; LO0UG ZN 4D1
  16. DUPIXENT [Suspect]
     Active Substance: DUPILUMAB
     Indication: ASTHMA
     Dosage: 300 MG
     Route: 058
     Dates: start: 20200309
  17. BECLOMETHASONE [BECLOMETASONE] [Concomitant]
     Active Substance: BECLOMETHASONE
     Dosage: 2 DF, QD; 200/6UG 2-4X DAILY 2 DOSES

REACTIONS (14)
  - Asthma [Recovered/Resolved]
  - Malaise [Recovered/Resolved]
  - Chest pain [Recovered/Resolved]
  - Herpes zoster [Recovered/Resolved]
  - Fatigue [Unknown]
  - Vomiting [Unknown]
  - Productive cough [Recovered/Resolved]
  - Cough [Recovered/Resolved]
  - Dyspnoea [Recovered/Resolved]
  - Body temperature fluctuation [Unknown]
  - Nausea [Unknown]
  - Faeces soft [Unknown]
  - Eosinophil count increased [Recovered/Resolved]
  - Micturition frequency decreased [Unknown]

NARRATIVE: CASE EVENT DATE: 2020
